FAERS Safety Report 18688158 (Version 1)
Quarter: 2020Q4

REPORT INFORMATION
  Report Type: Spontaneous
  Country: US (occurrence: US)
  Receive Date: 20201230
  Receipt Date: 20201230
  Transmission Date: 20210114
  Serious: No
  Sender: FDA-Public Use
  Company Number: None

PATIENT
  Age: 37 Year
  Sex: Female
  Weight: 58.5 kg

DRUGS (1)
  1. ELURYNG [Suspect]
     Active Substance: ETHINYL ESTRADIOL\ETONOGESTREL
     Dosage: ?          OTHER FREQUENCY:3 WEEKS IN;?
     Route: 067

REACTIONS (8)
  - Mood swings [None]
  - Metrorrhagia [None]
  - Muscle spasms [None]
  - Depression [None]
  - Breast tenderness [None]
  - Dizziness [None]
  - Headache [None]
  - Product complaint [None]
